FAERS Safety Report 12042653 (Version 3)
Quarter: 2016Q1

REPORT INFORMATION
  Report Type: Spontaneous
  Country: KR (occurrence: KR)
  Receive Date: 20160208
  Receipt Date: 20160226
  Transmission Date: 20160526
  Serious: Yes (Other)
  Sender: FDA-Public Use
  Company Number: KR-009507513-1507KOR014172

PATIENT
  Age: 68 Year
  Sex: Female
  Weight: 50 kg

DRUGS (30)
  1. NEOSTIGMINE METHYLSULFATE. [Concomitant]
     Active Substance: NEOSTIGMINE METHYLSULFATE
     Indication: PAIN PROPHYLAXIS
     Dosage: 0.5 MG, QD, INFUSION
     Route: 051
     Dates: start: 20150724
  2. SODIUM CHLORIDE. [Concomitant]
     Active Substance: SODIUM CHLORIDE
     Indication: DIABETES MELLITUS
     Dosage: 500 MG, QD
     Route: 042
     Dates: start: 20150724, end: 20150727
  3. DENOGAN [Concomitant]
     Indication: PYREXIA
     Dosage: 1 G, ONCE
     Route: 042
     Dates: start: 20150724, end: 20150724
  4. HUMULIN R [Concomitant]
     Active Substance: INSULIN HUMAN
     Indication: DIABETES MELLITUS
     Dosage: 50 IU, QD
     Route: 042
     Dates: start: 20150724, end: 20150727
  5. EPHEDRINE HYDROCHLORIDE [Concomitant]
     Active Substance: EPHEDRINE HYDROCHLORIDE
     Dosage: 4 MG, ONCE
     Route: 042
     Dates: start: 20150724, end: 20150724
  6. ACUPAN [Concomitant]
     Active Substance: NEFOPAM HYDROCHLORIDE
     Indication: PAIN PROPHYLAXIS
     Dosage: 30 MG, ONCE
     Route: 048
     Dates: start: 20150724, end: 20150724
  7. ROCURONIUM BROMIDE. [Suspect]
     Active Substance: ROCURONIUM BROMIDE
     Dosage: 100 MG, FREQUENCY 1,TOTAL DOSE OF 1 OOMG WAS ADMINISTERED UNTIL THE END OF THE OPERATION
     Route: 042
     Dates: start: 20150724, end: 20150724
  8. EPHEDRINE HYDROCHLORIDE [Concomitant]
     Active Substance: EPHEDRINE HYDROCHLORIDE
     Indication: BLOOD PRESSURE MANAGEMENT
     Dosage: 8 MG, ONCE
     Route: 042
     Dates: start: 20150724
  9. FENTANYL CITRATE. [Concomitant]
     Active Substance: FENTANYL CITRATE
     Dosage: 1500 UG, QD, INFUSION
     Dates: start: 20150724
  10. CEFAZOLIN [Concomitant]
     Active Substance: CEFAZOLIN
     Indication: INFECTION PROPHYLAXIS
     Dosage: 1 G, BID
     Route: 042
     Dates: start: 20150724, end: 20150724
  11. ALBUMIN HUMAN [Concomitant]
     Active Substance: ALBUMIN (HUMAN)
     Indication: PROPHYLAXIS
     Dosage: 100 ML, ONCE
     Route: 042
     Dates: start: 20150727, end: 20150727
  12. BRIDION [Suspect]
     Active Substance: SUGAMMADEX
     Indication: NEUROMUSCULAR BLOCKADE REVERSAL
     Dosage: 100 MG (2 MG/KG), ONCE
     Route: 042
     Dates: start: 20150724, end: 20150724
  13. NASEA [Concomitant]
     Active Substance: RAMOSETRON HYDROCHLORIDE
     Indication: PROPHYLAXIS OF NAUSEA AND VOMITING
     Dosage: 0.3 MG, ONCE
     Route: 042
     Dates: start: 20150724
  14. FENTANYL CITRATE. [Concomitant]
     Active Substance: FENTANYL CITRATE
     Indication: PAIN PROPHYLAXIS
     Dosage: 100 MICROGRAM, ONCE
     Route: 051
     Dates: start: 20150724
  15. HUMULIN R [Concomitant]
     Active Substance: INSULIN HUMAN
     Dosage: 5 UNIT, QD
     Route: 058
     Dates: start: 20150724, end: 20150724
  16. ROCAIN [Concomitant]
     Dosage: 300 MG, QD, INFUSION
     Route: 051
     Dates: start: 20150724
  17. FURTMAN [Concomitant]
     Indication: PROPHYLAXIS
     Dosage: 0.6 ML, QD
     Route: 042
     Dates: start: 20150719, end: 20150720
  18. NORZYME [Concomitant]
     Indication: PROPHYLAXIS
     Dosage: 2 CAPSULES, TID
     Route: 048
     Dates: start: 20150727
  19. ROCAIN [Concomitant]
     Indication: PAIN PROPHYLAXIS
     Dosage: 10 MG, ONCE
     Route: 008
     Dates: start: 20150724
  20. LANSTON LFDT [Concomitant]
     Active Substance: LANSOPRAZOLE
     Indication: PROPHYLAXIS
     Dosage: 30 MG, QD
     Route: 048
     Dates: start: 20150717, end: 20150720
  21. MOTILITONE [Concomitant]
     Active Substance: HERBALS
     Indication: PROPHYLAXIS
     Dosage: 1 TABLET, TID
     Route: 048
     Dates: start: 20150727
  22. ULTRACET [Concomitant]
     Active Substance: ACETAMINOPHEN\TRAMADOL HYDROCHLORIDE
     Indication: PAIN PROPHYLAXIS
     Dosage: 1 TABLET, BID
     Route: 048
     Dates: start: 20150727
  23. ROCURONIUM BROMIDE. [Suspect]
     Active Substance: ROCURONIUM BROMIDE
     Indication: MUSCLE RELAXANT THERAPY
     Dosage: 50 MG, FREQUENCY 1
     Route: 042
     Dates: start: 20150724, end: 20150724
  24. CHLORPHENIRAMINE MALEATE. [Concomitant]
     Active Substance: CHLORPHENIRAMINE MALEATE
     Indication: PRURITUS
     Dosage: 4 MG, ONCE
     Route: 042
     Dates: start: 20150725, end: 20150725
  25. FEROBA U [Concomitant]
     Indication: PROPHYLAXIS
     Dosage: 1 TABLET, BID
     Route: 048
     Dates: start: 20150716, end: 20150720
  26. MVH INJECTION [Concomitant]
     Indication: VITAMIN SUPPLEMENTATION
     Dosage: 5 ML, QD
     Route: 042
     Dates: start: 20150719, end: 20150720
  27. HALCION [Concomitant]
     Active Substance: TRIAZOLAM
     Indication: ANXIETY
     Dosage: 0.125 MG, ONCE
     Route: 048
     Dates: start: 20150724, end: 20150724
  28. ENCOVER [Concomitant]
     Indication: MALNUTRITION
     Dosage: 200 ML, ONCE
     Route: 042
     Dates: start: 20150727, end: 20150727
  29. FERINJECT [Concomitant]
     Active Substance: FERRIC CARBOXYMALTOSE
     Indication: IRON DEFICIENCY
     Dosage: 10 ML, QD
     Route: 042
     Dates: start: 20150728, end: 20150728
  30. ZIBOR [Concomitant]
     Indication: THROMBOSIS PROPHYLAXIS
     Dosage: 2500 IU, QD
     Route: 058
     Dates: start: 20150725, end: 20150729

REACTIONS (7)
  - Pruritus generalised [Recovered/Resolved]
  - Dysuria [Recovered/Resolved]
  - Bladder dilatation [Recovered/Resolved]
  - Tachycardia [Recovered/Resolved]
  - Pyrexia [Recovered/Resolved]
  - Nausea [Recovered/Resolved]
  - Hypotension [Recovered/Resolved]

NARRATIVE: CASE EVENT DATE: 20150724
